FAERS Safety Report 12888318 (Version 3)
Quarter: 2017Q1

REPORT INFORMATION
  Report Type: Spontaneous
  Country: FR (occurrence: FR)
  Receive Date: 20161027
  Receipt Date: 20170202
  Transmission Date: 20170428
  Serious: Yes (Other)
  Sender: FDA-Public Use
  Company Number: FR-UCBSA-2016040516

PATIENT
  Age: 59 Year
  Sex: Male
  Weight: 50 kg

DRUGS (13)
  1. LAROXYL [Concomitant]
     Active Substance: AMITRIPTYLINE
     Dosage: 25 DF, ONCE DAILY (QD)
     Route: 048
  2. TEGRETOL [Concomitant]
     Active Substance: CARBAMAZEPINE
     Dosage: MORNING HALF TABLET TEGRETOL 200 MG; HALF CP TEGRETOL 200 MG
     Dates: start: 2016, end: 2016
  3. TEGRETOL [Concomitant]
     Active Substance: CARBAMAZEPINE
     Dosage: MORNING 1 TABLET TEGRETOL 200 MG; AT NIGHT 1 TABLET TEGRETOL 200 MG
  4. VIMPAT [Suspect]
     Active Substance: LACOSAMIDE
     Dosage: 50 MG LACOSAMIDE (MORNING 2 TABLETS AND AT NIGHT 3 TABLETS)
     Dates: start: 201611, end: 2016
  5. VIMPAT [Suspect]
     Active Substance: LACOSAMIDE
     Dosage: 100 MG, 2X/DAY (BID)
     Dates: start: 201612
  6. RIVOTRIL [Concomitant]
     Active Substance: CLONAZEPAM
     Indication: EPILEPSY
     Dosage: 2 MG, UNK
  7. LAROXYL [Concomitant]
     Active Substance: AMITRIPTYLINE
     Indication: AFFECTIVE DISORDER
     Dosage: 17 GTT, ONCE DAILY (QD)
  8. LAROXYL [Concomitant]
     Active Substance: AMITRIPTYLINE
     Dosage: 50 MG, 2X/DAY (BID)
     Dates: start: 201611
  9. VIMPAT [Suspect]
     Active Substance: LACOSAMIDE
     Indication: EPILEPSY
     Dosage: 150 MG, 2X/DAY (BID)
     Dates: start: 20140923, end: 20161110
  10. VIMPAT [Suspect]
     Active Substance: LACOSAMIDE
     Dosage: 2 TABLETS IN THE MORNING, 2 TABLETS AT NIGHT
     Dates: start: 2016, end: 2016
  11. TEGRETOL [Concomitant]
     Active Substance: CARBAMAZEPINE
     Indication: PRODUCT USED FOR UNKNOWN INDICATION
     Dosage: 200
     Route: 048
     Dates: start: 20161110, end: 201611
  12. VIMPAT [Suspect]
     Active Substance: LACOSAMIDE
     Dosage: 50 MG, 2X/DAY (BID); (MORNING 1 TABLET AT NIGHT 1 TABLET)
     Route: 048
     Dates: start: 20161210, end: 201612
  13. TEGRETOL [Concomitant]
     Active Substance: CARBAMAZEPINE
     Dosage: HALF TABLET TEGRETOL 200 MG; HALF CP TEGRETOL 200 MG
     Dates: start: 201611, end: 2016

REACTIONS (6)
  - Toxicity to various agents [Recovered/Resolved]
  - Affective disorder [Unknown]
  - Malaise [Unknown]
  - Diplegia [Recovered/Resolved]
  - Loss of consciousness [Not Recovered/Not Resolved]
  - Dizziness [Not Recovered/Not Resolved]

NARRATIVE: CASE EVENT DATE: 2016
